FAERS Safety Report 7039832-2 (Version None)
Quarter: 2010Q4

REPORT INFORMATION
  Report Type: 
  Country: None (occurrence: None)
  Receive Date: 20101012
  Receipt Date: 20100929
  Transmission Date: 20110411
  Serious: Yes (Hospitalization)
  Sender: FDA-Public Use
  Company Number: AT-ELI_LILLY_AND_COMPANY-AT201010000294

PATIENT
  Age: 45 Year

DRUGS (9)
  1. ZYPREXA [Suspect]
  2. OXAZEPAM [Concomitant]
     Dosage: 60 MG, UNKNOWN
     Route: 065
     Dates: start: 20100809, end: 20100816
  3. OXAZEPAM [Concomitant]
     Dosage: 45 MG, UNKNOWN
     Route: 065
     Dates: start: 20100816, end: 20100818
  4. SOLIAN [Concomitant]
     Dosage: 200 MG, UNKNOWN
     Route: 065
     Dates: start: 20100716, end: 20100828
  5. CIPRALEX [Concomitant]
     Dosage: 10 MG, UNKNOWN
     Route: 065
     Dates: start: 20100809, end: 20100909
  6. SEROQUEL [Concomitant]
     Dosage: 100 MG, UNKNOWN
     Route: 065
     Dates: start: 20100826, end: 20100827
  7. SEROQUEL [Concomitant]
     Dosage: 250 MG, UNKNOWN
     Route: 065
     Dates: start: 20100827, end: 20100828
  8. SEROQUEL [Concomitant]
     Dosage: 300 MG, UNKNOWN
     Route: 065
  9. LOVENOX [Concomitant]
     Dosage: 120 MG, UNKNOWN
     Route: 065
     Dates: start: 20100818

REACTIONS (1)
  - DEEP VEIN THROMBOSIS [None]
